FAERS Safety Report 6219556-1 (Version None)
Quarter: 2009Q2

REPORT INFORMATION
  Report Type: 
  Country: None (occurrence: None)
  Receive Date: 20090605
  Receipt Date: 20090521
  Transmission Date: 20091009
  Serious: Yes (Other)
  Sender: FDA-Public Use
  Company Number: US-1169658

PATIENT
  Age: 79 Year
  Sex: Female

DRUGS (2)
  1. NEVANAC [Suspect]
     Indication: CATARACT OPERATION
     Dosage: (1 GTT OU QID OPHTHALMIC)
     Route: 047
     Dates: start: 20080701, end: 20081001
  2. NEVANAC [Suspect]
     Indication: CATARACT OPERATION
     Dosage: (1 GTT OU QID OPHTHALMIC)
     Route: 047
     Dates: start: 20090401

REACTIONS (13)
  - APRAXIA [None]
  - DIPLOPIA [None]
  - EYE DISCHARGE [None]
  - EYE PAIN [None]
  - EYE PRURITUS [None]
  - EYE SWELLING [None]
  - EYELID PTOSIS [None]
  - FOREIGN BODY SENSATION IN EYES [None]
  - MADAROSIS [None]
  - MUSCLE STRAIN [None]
  - PHOTOPHOBIA [None]
  - RETINAL OEDEMA [None]
  - VISION BLURRED [None]
